FAERS Safety Report 8523221-5 (Version None)
Quarter: 2012Q3

REPORT INFORMATION
  Report Type: 
  Country: None (occurrence: None)
  Receive Date: 20120720
  Receipt Date: 20120712
  Transmission Date: 20120928
  Serious: Yes (Hospitalization)
  Sender: FDA-Public Use
  Company Number: US-BAYER-2012-070688

PATIENT
  Age: 33 Year
  Sex: Female
  Weight: 49.887 kg

DRUGS (5)
  1. PERCOCET [Concomitant]
     Indication: BACK PAIN
     Dosage: 5-325 MG
     Route: 048
     Dates: start: 20041229
  2. LEVOXYL [Concomitant]
     Indication: BASEDOW'S DISEASE
     Dosage: 25 MCG
     Route: 048
  3. YASMIN [Suspect]
  4. RELAFEN [Concomitant]
     Indication: BACK PAIN
  5. ASPIRIN [Concomitant]

REACTIONS (1)
  - DEEP VEIN THROMBOSIS [None]
